FAERS Safety Report 7424397-3 (Version None)
Quarter: 2011Q2

REPORT INFORMATION
  Report Type: 
  Country: None (occurrence: None)
  Receive Date: 20110411
  Receipt Date: 20110329
  Transmission Date: 20111010
  Serious: Yes (Other)
  Sender: FDA-Public Use
  Company Number: 20108199

PATIENT
  Sex: Female

DRUGS (6)
  1. NAPROXEN (ALEVE) [Concomitant]
  2. FLUOXETINE [Concomitant]
  3. LIORESAL [Suspect]
     Indication: MUSCLE SPASTICITY
     Dosage: 476.2-232.8 MCG, DAILY, INTRATHECAL
     Route: 037
  4. SINGQUAN [Concomitant]
  5. CLONAZEPAM [Concomitant]
  6. VYVANSE [Concomitant]

REACTIONS (6)
  - OVERDOSE [None]
  - GAIT DISTURBANCE [None]
  - PAIN IN EXTREMITY [None]
  - NO THERAPEUTIC RESPONSE [None]
  - ASTHENIA [None]
  - MUSCLE TIGHTNESS [None]
